FAERS Safety Report 15268739 (Version 1)
Quarter: 2018Q3

REPORT INFORMATION
  Report Type: Report from Study
  Country: US (occurrence: US)
  Receive Date: 20180813
  Receipt Date: 20180813
  Transmission Date: 20181010
  Serious: Yes (Other)
  Sender: FDA-Public Use
  Company Number: US-BEH-2018093574

PATIENT
  Age: 43 Year
  Sex: Male

DRUGS (3)
  1. HUMAN IMMUNOGLOBULIN IV (GENERIC) [Suspect]
     Active Substance: HUMAN IMMUNOGLOBULIN G
     Indication: CHRONIC INFLAMMATORY DEMYELINATING POLYRADICULONEUROPATHY
     Dosage: UNK
     Route: 042
     Dates: start: 2014
  2. HUMAN IMMUNOGLOBULIN IV (GENERIC) [Suspect]
     Active Substance: HUMAN IMMUNOGLOBULIN G
     Dosage: 400 MG/KG, QMT
     Route: 042
     Dates: start: 2015
  3. HUMAN IMMUNOGLOBULIN IV (GENERIC) [Suspect]
     Active Substance: HUMAN IMMUNOGLOBULIN G
     Dosage: UNK, 2G/KG
     Route: 042
     Dates: start: 2015

REACTIONS (1)
  - Haemolytic anaemia [Unknown]
